FAERS Safety Report 6881731-0 (Version None)
Quarter: 2010Q3

REPORT INFORMATION
  Report Type: 
  Country: None (occurrence: None)
  Receive Date: 20100729
  Receipt Date: 20100723
  Transmission Date: 20110219
  Serious: No
  Sender: FDA-Public Use
  Company Number: US-BIOGENIDEC-2010BI025140

PATIENT
  Age: 24 Year
  Sex: Female

DRUGS (2)
  1. AVONEX [Suspect]
     Indication: MULTIPLE SCLEROSIS
     Route: 030
     Dates: start: 20071011, end: 20080601
  2. AVONEX [Suspect]
     Route: 030
     Dates: start: 20090321

REACTIONS (2)
  - FEELING HOT [None]
  - NASAL CONGESTION [None]
